FAERS Safety Report 17919946 (Version 1)
Quarter: 2020Q2

REPORT INFORMATION
  Report Type: Spontaneous
  Country: US (occurrence: US)
  Receive Date: 20200620
  Receipt Date: 20200620
  Transmission Date: 20200714
  Serious: Yes (Other)
  Sender: FDA-Public Use
  Company Number: US-ROCHE-2623744

PATIENT
  Sex: Female
  Weight: 85.81 kg

DRUGS (2)
  1. ACTEMRA [Suspect]
     Active Substance: TOCILIZUMAB
     Indication: RHEUMATOID ARTHRITIS
     Dosage: EVERY OTHER WEEK ;ONGOING: NO
     Route: 058
     Dates: start: 202005, end: 20200519
  2. ACTEMRA [Suspect]
     Active Substance: TOCILIZUMAB
     Dosage: EVERY OTHER WEEK ;ONGOING: YES
     Route: 058
     Dates: start: 20200605

REACTIONS (2)
  - Urinary tract infection [Recovered/Resolved]
  - Device difficult to use [Unknown]
